FAERS Safety Report 10153673 (Version 1)
Quarter: 2014Q2

REPORT INFORMATION
  Report Type: Spontaneous
  Country: US (occurrence: US)
  Receive Date: 20140506
  Receipt Date: 20140506
  Transmission Date: 20141212
  Serious: No
  Sender: FDA-Public Use
  Company Number: US-009507513-1404USA015737

PATIENT
  Sex: Male

DRUGS (2)
  1. ASMANEX TWISTHALER [Suspect]
     Indication: LUNG INFECTION
     Dosage: 1-2 PUFFS, DAILY
     Route: 055
     Dates: start: 201310
  2. ALLEGRA [Concomitant]

REACTIONS (2)
  - Lung infection [Not Recovered/Not Resolved]
  - Product quality issue [Unknown]
